FAERS Safety Report 13600553 (Version 3)
Quarter: 2017Q2

REPORT INFORMATION
  Report Type: Report from Study
  Country: GB (occurrence: GB)
  Receive Date: 20170601
  Receipt Date: 20170620
  Transmission Date: 20170830
  Serious: Yes (Other)
  Sender: FDA-Public Use
  Company Number: GB-ASTRAZENECA-2017SE56798

PATIENT
  Age: 27965 Day
  Sex: Male

DRUGS (64)
  1. MEDI4736 [Suspect]
     Active Substance: DURVALUMAB
     Indication: NON-SMALL CELL LUNG CANCER
     Dosage: 690.0MG ONCE/SINGLE ADMINISTRATION
     Route: 042
     Dates: start: 20161012, end: 20161012
  2. MEDI4736 [Suspect]
     Active Substance: DURVALUMAB
     Indication: NON-SMALL CELL LUNG CANCER
     Dosage: 690.0MG ONCE/SINGLE ADMINISTRATION
     Route: 042
     Dates: start: 20161221, end: 20161221
  3. DOCUSATE SODIUM. [Concomitant]
     Active Substance: DOCUSATE SODIUM
     Indication: CONSTIPATION
     Route: 048
     Dates: start: 20160518
  4. METOCLOPRAMIDE. [Concomitant]
     Active Substance: METOCLOPRAMIDE
     Indication: PROPHYLAXIS OF NAUSEA AND VOMITING
     Dosage: 30.0MG AS REQUIRED
     Route: 048
     Dates: start: 20160529
  5. PARACETAMOL [Concomitant]
     Active Substance: ACETAMINOPHEN
     Indication: PAIN
     Dosage: 1.0G AS REQUIRED
     Route: 048
     Dates: start: 20160607
  6. AZITHROMYCIN ANHYDROUS. [Concomitant]
     Active Substance: AZITHROMYCIN ANHYDROUS
     Indication: BRONCHIECTASIS
     Route: 048
     Dates: start: 20170222
  7. ACYCLOVIR. [Concomitant]
     Active Substance: ACYCLOVIR
     Indication: PROPHYLAXIS
     Route: 048
     Dates: start: 20170315
  8. MEDI4736 [Suspect]
     Active Substance: DURVALUMAB
     Indication: NON-SMALL CELL LUNG CANCER
     Dosage: 690.0MG ONCE/SINGLE ADMINISTRATION
     Route: 042
     Dates: start: 20150527, end: 20150527
  9. MEDI4736 [Suspect]
     Active Substance: DURVALUMAB
     Indication: NON-SMALL CELL LUNG CANCER
     Dosage: 690.0MG ONCE/SINGLE ADMINISTRATION
     Route: 042
     Dates: start: 20150805, end: 20150805
  10. MEDI4736 [Suspect]
     Active Substance: DURVALUMAB
     Indication: NON-SMALL CELL LUNG CANCER
     Dosage: 690.0MG ONCE/SINGLE ADMINISTRATION
     Route: 042
     Dates: start: 20160203, end: 20160203
  11. MEDI4736 [Suspect]
     Active Substance: DURVALUMAB
     Indication: NON-SMALL CELL LUNG CANCER
     Dosage: 690.0MG ONCE/SINGLE ADMINISTRATION
     Route: 042
     Dates: start: 20161123, end: 20161123
  12. MEDI4736 [Suspect]
     Active Substance: DURVALUMAB
     Indication: NON-SMALL CELL LUNG CANCER
     Dosage: 690.0MG ONCE/SINGLE ADMINISTRATION
     Route: 042
     Dates: start: 20170104, end: 20170104
  13. MEDI4736 [Suspect]
     Active Substance: DURVALUMAB
     Indication: NON-SMALL CELL LUNG CANCER
     Dosage: 690.0MG ONCE/SINGLE ADMINISTRATION
     Route: 042
     Dates: start: 20170118, end: 20170118
  14. DEXAMETHASONE/NEOMYCIN [Concomitant]
     Indication: CATARACT OPERATION
     Dosage: 4.0DF ONCE/SINGLE ADMINISTRATION
     Route: 047
     Dates: start: 20150830
  15. PARACETAMOL [Concomitant]
     Active Substance: ACETAMINOPHEN
     Indication: BACK PAIN
     Dosage: 1.0G AS REQUIRED
     Route: 048
     Dates: start: 20160607
  16. FYBOGEL [Concomitant]
     Active Substance: PLANTAGO OVATA SEED
     Indication: PROPHYLAXIS
     Dosage: 1 SACHET AS REQUIRED
     Route: 048
     Dates: start: 20161221
  17. MEDI4736 [Suspect]
     Active Substance: DURVALUMAB
     Indication: NON-SMALL CELL LUNG CANCER
     Dosage: 690.0MG ONCE/SINGLE ADMINISTRATION
     Route: 042
     Dates: start: 20150401, end: 20150401
  18. MEDI4736 [Suspect]
     Active Substance: DURVALUMAB
     Indication: NON-SMALL CELL LUNG CANCER
     Dosage: 690.0MG ONCE/SINGLE ADMINISTRATION
     Route: 042
     Dates: start: 20150819, end: 20150819
  19. MEDI4736 [Suspect]
     Active Substance: DURVALUMAB
     Indication: NON-SMALL CELL LUNG CANCER
     Dosage: 690.0MG ONCE/SINGLE ADMINISTRATION
     Route: 042
     Dates: start: 20160120, end: 20160120
  20. MEDI4736 [Suspect]
     Active Substance: DURVALUMAB
     Indication: NON-SMALL CELL LUNG CANCER
     Dosage: 690.0MG ONCE/SINGLE ADMINISTRATION
     Route: 042
     Dates: start: 20161109, end: 20161109
  21. GAVISCON [Concomitant]
     Active Substance: ALUMINUM HYDROXIDE\MAGNESIUM CARBONATE
     Indication: DYSPEPSIA
     Dosage: AS REQUIRED
     Route: 048
     Dates: start: 20160201
  22. PARACETAMOL [Concomitant]
     Active Substance: ACETAMINOPHEN
     Indication: BACK PAIN
     Dosage: 500.0MG AS REQUIRED
     Route: 048
     Dates: start: 201605
  23. MEDI4736 [Suspect]
     Active Substance: DURVALUMAB
     Indication: NON-SMALL CELL LUNG CANCER
     Dosage: 690.0MG ONCE/SINGLE ADMINISTRATION
     Route: 042
     Dates: start: 20150930, end: 20150930
  24. MEDI4736 [Suspect]
     Active Substance: DURVALUMAB
     Indication: NON-SMALL CELL LUNG CANCER
     Dosage: 690.0MG ONCE/SINGLE ADMINISTRATION
     Route: 042
     Dates: start: 20151028, end: 20151028
  25. MEDI4736 [Suspect]
     Active Substance: DURVALUMAB
     Indication: NON-SMALL CELL LUNG CANCER
     Dosage: 690.0MG ONCE/SINGLE ADMINISTRATION
     Route: 042
     Dates: start: 20151209, end: 20151209
  26. MEDI4736 [Suspect]
     Active Substance: DURVALUMAB
     Indication: NON-SMALL CELL LUNG CANCER
     Dosage: 690.0MG ONCE/SINGLE ADMINISTRATION
     Route: 042
     Dates: start: 20161026, end: 20161026
  27. MEDI4736 [Suspect]
     Active Substance: DURVALUMAB
     Indication: NON-SMALL CELL LUNG CANCER
     Dosage: 690.0MG ONCE/SINGLE ADMINISTRATION
     Route: 042
     Dates: start: 20170215, end: 20170215
  28. TAMSULOSIN [Concomitant]
     Active Substance: TAMSULOSIN
     Indication: BENIGN PROSTATIC HYPERPLASIA
     Route: 048
  29. SENNA [Concomitant]
     Active Substance: SENNA LEAF\SENNOSIDES\SENNOSIDES A AND B
     Indication: CONSTIPATION
     Route: 048
     Dates: start: 20160518
  30. AZITHROMYCIN ANHYDROUS. [Concomitant]
     Active Substance: AZITHROMYCIN ANHYDROUS
     Indication: RESPIRATORY TRACT INFECTION
     Route: 048
     Dates: start: 20170222
  31. HYDROCORTISONE. [Concomitant]
     Active Substance: HYDROCORTISONE
     Indication: ADRENAL INSUFFICIENCY
     Route: 048
     Dates: start: 20160301
  32. MEDI4736 [Suspect]
     Active Substance: DURVALUMAB
     Indication: NON-SMALL CELL LUNG CANCER
     Dosage: 690.0MG ONCE/SINGLE ADMINISTRATION
     Route: 042
     Dates: start: 20151125, end: 20151125
  33. MEDI4736 [Suspect]
     Active Substance: DURVALUMAB
     Indication: NON-SMALL CELL LUNG CANCER
     Dosage: 690.0MG ONCE/SINGLE ADMINISTRATION
     Route: 042
     Dates: start: 20161207, end: 20161207
  34. POLYMYXIN B. [Concomitant]
     Active Substance: POLYMYXIN B
     Indication: CATARACT OPERATION
     Dosage: 4.0DF ONCE/SINGLE ADMINISTRATION
     Route: 047
     Dates: start: 20150830
  35. MOVICOL [Concomitant]
     Active Substance: POLYETHYLENE GLYCOL 3350\POTASSIUM CHLORIDE\SODIUM BICARBONATE\SODIUM CHLORIDE
     Indication: CONSTIPATION
     Dosage: 2 SACHETS TWO TIMES A DAY
     Route: 048
     Dates: start: 20160513
  36. LACTULOSE. [Concomitant]
     Active Substance: LACTULOSE
     Indication: PROPHYLAXIS
     Route: 048
     Dates: start: 20160903
  37. AMOXICILLIN. [Concomitant]
     Active Substance: AMOXICILLIN
     Indication: LOWER RESPIRATORY TRACT INFECTION
     Route: 048
     Dates: start: 20160914
  38. MEDI4736 [Suspect]
     Active Substance: DURVALUMAB
     Indication: NON-SMALL CELL LUNG CANCER
     Dosage: 690.0MG ONCE/SINGLE ADMINISTRATION
     Route: 042
     Dates: start: 20150318, end: 20150318
  39. MEDI4736 [Suspect]
     Active Substance: DURVALUMAB
     Indication: NON-SMALL CELL LUNG CANCER
     Dosage: 690.0MG ONCE/SINGLE ADMINISTRATION
     Route: 042
     Dates: start: 20150722, end: 20150722
  40. MEDI4736 [Suspect]
     Active Substance: DURVALUMAB
     Indication: NON-SMALL CELL LUNG CANCER
     Dosage: 690.0MG ONCE/SINGLE ADMINISTRATION
     Route: 042
     Dates: start: 20170201, end: 20170201
  41. MEDI4736 [Suspect]
     Active Substance: DURVALUMAB
     Indication: NON-SMALL CELL LUNG CANCER
     Dosage: 690.0MG ONCE/SINGLE ADMINISTRATION
     Route: 042
     Dates: start: 20170510, end: 20170510
  42. OMEPRAZOLE. [Concomitant]
     Active Substance: OMEPRAZOLE
     Indication: DYSPEPSIA
     Route: 048
     Dates: start: 20150513
  43. FERROUS SULFATE. [Concomitant]
     Active Substance: FERROUS SULFATE
     Indication: IRON DEFICIENCY
     Route: 048
     Dates: start: 20151015
  44. MORPHINE SULFATE. [Concomitant]
     Active Substance: MORPHINE SULFATE
     Indication: PAIN
     Dosage: 5.0MG AS REQUIRED
     Route: 048
     Dates: start: 20160529
  45. FLUCONAZOLE. [Concomitant]
     Active Substance: FLUCONAZOLE
     Indication: PROPHYLAXIS
     Route: 048
     Dates: start: 20160315
  46. COTRIMOXAZOLE [Concomitant]
     Active Substance: SULFAMETHOXAZOLE\TRIMETHOPRIM
     Indication: PROPHYLAXIS
     Route: 048
     Dates: start: 20170315
  47. PREDNISOLONE. [Concomitant]
     Active Substance: PREDNISOLONE
     Indication: THROMBOCYTOPENIA
     Route: 048
     Dates: start: 20170322
  48. MEDI4736 [Suspect]
     Active Substance: DURVALUMAB
     Indication: NON-SMALL CELL LUNG CANCER
     Dosage: 690.0MG ONCE/SINGLE ADMINISTRATION
     Route: 042
     Dates: start: 20150513, end: 20150513
  49. MEDI4736 [Suspect]
     Active Substance: DURVALUMAB
     Indication: NON-SMALL CELL LUNG CANCER
     Dosage: 690.0MG ONCE/SINGLE ADMINISTRATION
     Route: 042
     Dates: start: 20150610, end: 20150610
  50. MEDI4736 [Suspect]
     Active Substance: DURVALUMAB
     Indication: NON-SMALL CELL LUNG CANCER
     Dosage: 690.0MG ONCE/SINGLE ADMINISTRATION
     Route: 042
     Dates: start: 20150708, end: 20150708
  51. MEDI4736 [Suspect]
     Active Substance: DURVALUMAB
     Indication: NON-SMALL CELL LUNG CANCER
     Dosage: 690.0MG ONCE/SINGLE ADMINISTRATION
     Route: 042
     Dates: start: 20160217, end: 20160217
  52. CITALOPRAM [Concomitant]
     Active Substance: CITALOPRAM HYDROBROMIDE
     Indication: DEPRESSION
     Route: 048
     Dates: start: 20160602
  53. PREGABALIN. [Concomitant]
     Active Substance: PREGABALIN
     Indication: BACK PAIN
     Route: 048
     Dates: start: 20160902
  54. MEDI4736 [Suspect]
     Active Substance: DURVALUMAB
     Indication: NON-SMALL CELL LUNG CANCER
     Dosage: 690.0MG ONCE/SINGLE ADMINISTRATION
     Route: 042
     Dates: start: 20150429, end: 20150429
  55. MEDI4736 [Suspect]
     Active Substance: DURVALUMAB
     Indication: NON-SMALL CELL LUNG CANCER
     Dosage: 690.0MG ONCE/SINGLE ADMINISTRATION
     Route: 042
     Dates: start: 20150624, end: 20150624
  56. MEDI4736 [Suspect]
     Active Substance: DURVALUMAB
     Indication: NON-SMALL CELL LUNG CANCER
     Dosage: 690.0MG ONCE/SINGLE ADMINISTRATION
     Route: 042
     Dates: start: 20151223, end: 20151223
  57. MEDI4736 [Suspect]
     Active Substance: DURVALUMAB
     Indication: NON-SMALL CELL LUNG CANCER
     Dosage: 690.0MG ONCE/SINGLE ADMINISTRATION
     Route: 042
     Dates: start: 20160302, end: 20160302
  58. PARACETAMOL [Concomitant]
     Active Substance: ACETAMINOPHEN
     Indication: PAIN
     Dosage: 500.0MG AS REQUIRED
     Route: 048
     Dates: start: 201605
  59. HYDROCORTISONE. [Concomitant]
     Active Substance: HYDROCORTISONE
     Indication: ADRENAL INSUFFICIENCY
     Route: 048
     Dates: start: 20160301
  60. MEDI4736 [Suspect]
     Active Substance: DURVALUMAB
     Indication: NON-SMALL CELL LUNG CANCER
     Dosage: 690.0MG ONCE/SINGLE ADMINISTRATION
     Route: 042
     Dates: start: 20150415, end: 20150415
  61. MEDI4736 [Suspect]
     Active Substance: DURVALUMAB
     Indication: NON-SMALL CELL LUNG CANCER
     Dosage: 690.0MG ONCE/SINGLE ADMINISTRATION
     Route: 042
     Dates: start: 20150902, end: 20150902
  62. MEDI4736 [Suspect]
     Active Substance: DURVALUMAB
     Indication: NON-SMALL CELL LUNG CANCER
     Dosage: 690.0MG ONCE/SINGLE ADMINISTRATION
     Route: 042
     Dates: start: 20150916, end: 20150916
  63. MEDI4736 [Suspect]
     Active Substance: DURVALUMAB
     Indication: NON-SMALL CELL LUNG CANCER
     Dosage: 690.0MG ONCE/SINGLE ADMINISTRATION
     Route: 042
     Dates: start: 20151111, end: 20151111
  64. MEDI4736 [Suspect]
     Active Substance: DURVALUMAB
     Indication: NON-SMALL CELL LUNG CANCER
     Dosage: 690.0MG ONCE/SINGLE ADMINISTRATION
     Route: 042
     Dates: start: 20160106, end: 20160106

REACTIONS (1)
  - Thrombocytopenia [Recovered/Resolved]

NARRATIVE: CASE EVENT DATE: 20170524
